FAERS Safety Report 18434782 (Version 3)
Quarter: 2021Q1

REPORT INFORMATION
  Report Type: Spontaneous
  Country: US (occurrence: US)
  Receive Date: 20201028
  Receipt Date: 20210312
  Transmission Date: 20210419
  Serious: No
  Sender: FDA-Public Use
  Company Number: US-GILEAD-2020-0501417

PATIENT
  Age: 41 Year
  Sex: Female

DRUGS (3)
  1. TRUVADA [Suspect]
     Active Substance: EMTRICITABINE\TENOFOVIR DISOPROXIL FUMARATE
     Indication: HIV INFECTION
     Dosage: UNK
     Route: 048
     Dates: start: 201307, end: 201901
  2. GENVOYA [Concomitant]
     Active Substance: COBICISTAT\ELVITEGRAVIR\EMTRICITABINE\TENOFOVIR ALAFENAMIDE FUMARATE
  3. TRUVADA [Suspect]
     Active Substance: EMTRICITABINE\TENOFOVIR DISOPROXIL FUMARATE
     Dosage: UNK
     Route: 048
     Dates: start: 201601, end: 202001

REACTIONS (7)
  - Pain [Unknown]
  - Anxiety [Unknown]
  - Bone density abnormal [Unknown]
  - Bone density decreased [Unknown]
  - Emotional distress [Unknown]
  - Tooth loss [Recovered/Resolved]
  - Anhedonia [Unknown]

NARRATIVE: CASE EVENT DATE: 201801
